FAERS Safety Report 6705843-7 (Version None)
Quarter: 2010Q2

REPORT INFORMATION
  Report Type: 
  Country: None (occurrence: None)
  Receive Date: 20100429
  Receipt Date: 20100419
  Transmission Date: 20101027
  Serious: Yes (Hospitalization)
  Sender: FDA-Public Use
  Company Number: B0648926A

PATIENT
  Age: 16 Year
  Sex: Male

DRUGS (6)
  1. HYCAMTIN [Suspect]
     Indication: B PRECURSOR TYPE ACUTE LEUKAEMIA
     Dosage: INTRAVENOUS
     Route: 042
  2. VINORELBINE TARTRATE [Suspect]
     Indication: B PRECURSOR TYPE ACUTE LEUKAEMIA
     Dosage: 20 MG/M2 / WEEKLY / INTRAVENOUS
     Route: 042
  3. THIOTEPA [Suspect]
     Indication: B PRECURSOR TYPE ACUTE LEUKAEMIA
     Dosage: 15 MG/M2 / INTRAVENOUS INFUSION
     Route: 042
  4. DEXAMETHASONE [Suspect]
     Indication: B PRECURSOR TYPE ACUTE LEUKAEMIA
     Dosage: 45 MG/M2
  5. CLOFARABINE (FORMULATION UNKNOWN) (CLOFARABINE) [Suspect]
     Indication: B PRECURSOR TYPE ACUTE LEUKAEMIA
     Dosage: INTRAVENOUS INFUSION
     Route: 042
  6. GRANULOCYTE COL.STIM.FACT [Concomitant]

REACTIONS (9)
  - ACUTE RESPIRATORY DISTRESS SYNDROME [None]
  - BLOOD AMYLASE INCREASED [None]
  - BLOOD CULTURE POSITIVE [None]
  - BONE MARROW FAILURE [None]
  - COLITIS [None]
  - DRUG TOXICITY [None]
  - HYPOTENSION [None]
  - LIPASE INCREASED [None]
  - LUNG INFECTION [None]
